FAERS Safety Report 19229942 (Version 2)
Quarter: 2021Q2

REPORT INFORMATION
  Report Type: Report from Study
  Country: US (occurrence: US)
  Receive Date: 20210506
  Receipt Date: 20210528
  Transmission Date: 20210717
  Serious: Yes (Other)
  Sender: FDA-Public Use
  Company Number: US-BRISTOL-MYERS SQUIBB COMPANY-BMS-2021-042376

PATIENT
  Age: 16 Year
  Sex: Female
  Weight: 65.76 kg

DRUGS (2)
  1. PLAQUENIL [Concomitant]
     Active Substance: HYDROXYCHLOROQUINE SULFATE
     Indication: PRODUCT USED FOR UNKNOWN INDICATION
     Dosage: UNKNOWN
     Route: 065
  2. ABATACEPT [Suspect]
     Active Substance: ABATACEPT
     Indication: SYSTEMIC LUPUS ERYTHEMATOSUS
     Dosage: 125 MILLIGRAM QWK
     Route: 058
     Dates: start: 20210418

REACTIONS (3)
  - Device malfunction [Unknown]
  - Needle issue [Unknown]
  - Intentional product use issue [Unknown]

NARRATIVE: CASE EVENT DATE: 20210425
